FAERS Safety Report 5322228-9 (Version None)
Quarter: 2007Q2

REPORT INFORMATION
  Report Type: 
  Country: None (occurrence: None)
  Receive Date: 20070511
  Receipt Date: 20070503
  Transmission Date: 20071010
  Serious: Yes (Life-Threatening)
  Sender: FDA-Public Use
  Company Number: IT-ROCHE-496077

PATIENT
  Age: 71 Year
  Sex: Male

DRUGS (1)
  1. ROCEPHIN [Suspect]
     Dosage: FORM: VIAL.
     Route: 030
     Dates: start: 20070412, end: 20070412

REACTIONS (5)
  - APNOEA [None]
  - BRONCHOSTENOSIS [None]
  - COUGH [None]
  - CYANOSIS [None]
  - DYSPNOEA [None]
